FAERS Safety Report 5381600-1 (Version None)
Quarter: 2007Q2

REPORT INFORMATION
  Report Type: 
  Country: None (occurrence: None)
  Receive Date: 20070629
  Receipt Date: 20070306
  Transmission Date: 20071010
  Serious: Yes (Hospitalization, Other)
  Sender: FDA-Public Use
  Company Number: 2007015833

PATIENT
  Age: 16 Year
  Sex: Female

DRUGS (4)
  1. ZOLOFT [Suspect]
  2. MARIJUANA (CANNABIS) [Suspect]
  3. ALCOHOL (ETHANOL) [Suspect]
  4. AMPHETAMINE SULFATE [Suspect]

REACTIONS (4)
  - DRUG ABUSER [None]
  - HALLUCINATION [None]
  - PSYCHOTIC DISORDER [None]
  - TACHYCARDIA [None]
